FAERS Safety Report 22079006 (Version 1)
Quarter: 2023Q1

REPORT INFORMATION
  Report Type: Report from Study
  Country: BR (occurrence: None)
  Receive Date: 20230309
  Receipt Date: 20230309
  Transmission Date: 20230418
  Serious: Yes (Other)
  Sender: FDA-Public Use
  Company Number: BR-Merck Healthcare KGaA-9206077

PATIENT
  Age: 54 Year
  Sex: Female

DRUGS (6)
  1. REBIF [Suspect]
     Active Substance: INTERFERON BETA-1A
     Indication: Multiple sclerosis
     Route: 058
     Dates: start: 20100304
  2. INTERFERON BETA-1A [Suspect]
     Active Substance: INTERFERON BETA-1A
     Indication: Multiple sclerosis
     Dosage: THERAPY START DATE: 22-OCT-2019
     Route: 058
  3. INTERFERON BETA-1A [Suspect]
     Active Substance: INTERFERON BETA-1A
     Dosage: THERAPY START DATE: 17-01-2020
     Route: 058
  4. SIMVASTATIN [Concomitant]
     Active Substance: SIMVASTATIN
     Indication: Product used for unknown indication
  5. PIOGLITAZONE HYDROCHLORIDE [Concomitant]
     Active Substance: PIOGLITAZONE HYDROCHLORIDE
     Indication: Product used for unknown indication
  6. MATRIX [IBUPROFEN] [Concomitant]
     Indication: Product used for unknown indication

REACTIONS (12)
  - Schizophrenia [Unknown]
  - Brain injury [Unknown]
  - Cataract [Not Recovered/Not Resolved]
  - Glaucoma [Recovered/Resolved]
  - Malaise [Not Recovered/Not Resolved]
  - Laboratory test abnormal [Recovered/Resolved]
  - Injection site pain [Not Recovered/Not Resolved]
  - Chills [Not Recovered/Not Resolved]
  - Muscular weakness [Not Recovered/Not Resolved]
  - Muscle spasms [Unknown]
  - Arthritis [Recovered/Resolved]
  - Off label use [Not Recovered/Not Resolved]

NARRATIVE: CASE EVENT DATE: 20100304
